FAERS Safety Report 23314837 (Version 5)
Quarter: 2024Q3

REPORT INFORMATION
  Report Type: Spontaneous
  Country: US (occurrence: US)
  Receive Date: 20231219
  Receipt Date: 20240801
  Transmission Date: 20241017
  Serious: Yes (Other)
  Sender: BRISTOL MYERS SQUIBB
  Company Number: US-BRISTOL-MYERS SQUIBB COMPANY-2023-182312

PATIENT
  Age: 69 Year
  Sex: Female
  Weight: 73.03 kg

DRUGS (4)
  1. POMALYST [Suspect]
     Active Substance: POMALIDOMIDE
     Indication: Plasma cell myeloma
     Route: 048
  2. POMALYST [Suspect]
     Active Substance: POMALIDOMIDE
     Indication: Plasma cell myeloma recurrent
     Dosage: FREQUENCY: ONCE DAILY FOR 21 DAYS ON THEN 7 DAYS OFF/DAILY FOR 21 DAYS OF A 28 DAY CYCLE
     Route: 048
     Dates: start: 202312
  3. POMALYST [Suspect]
     Active Substance: POMALIDOMIDE
     Route: 048
     Dates: start: 20231208
  4. DARZALEX [Concomitant]
     Active Substance: DARATUMUMAB
     Indication: Product used for unknown indication

REACTIONS (15)
  - Fatigue [Not Recovered/Not Resolved]
  - Cough [Unknown]
  - Dyspnoea [Unknown]
  - White blood cell count decreased [Unknown]
  - Red blood cell count decreased [Unknown]
  - Blood bilirubin increased [Unknown]
  - Poor quality sleep [Not Recovered/Not Resolved]
  - Chest discomfort [Not Recovered/Not Resolved]
  - Palpitations [Not Recovered/Not Resolved]
  - Cataract [Not Recovered/Not Resolved]
  - Vision blurred [Not Recovered/Not Resolved]
  - Constipation [Recovered/Resolved]
  - Chest pain [Recovering/Resolving]
  - White blood cell disorder [Recovering/Resolving]
  - Blood bilirubin abnormal [Unknown]
